FAERS Safety Report 9812533 (Version 1)
Quarter: 2014Q1

REPORT INFORMATION
  Report Type: Spontaneous
  Country: NL (occurrence: NL)
  Receive Date: 20140113
  Receipt Date: 20140113
  Transmission Date: 20141002
  Serious: Yes (Hospitalization)
  Sender: FDA-Public Use
  Company Number: NL-AMGEN-NLDSP2014001831

PATIENT
  Age: 75 Year
  Sex: Female
  Weight: 64 kg

DRUGS (4)
  1. ENBREL [Suspect]
     Indication: PRODUCT USED FOR UNKNOWN INDICATION
     Dosage: 50 MG, Q2WK
     Route: 058
  2. METHOTREXATE [Concomitant]
     Dosage: 10 MG, WEEKLY
     Route: 048
  3. FOLIC ACID [Concomitant]
     Dosage: 5 MG, WEEKLY
     Route: 048
  4. SYMBICORT [Concomitant]
     Dosage: UNK

REACTIONS (1)
  - Dyspnoea [Recovered/Resolved]
